FAERS Safety Report 18013590 (Version 1)
Quarter: 2020Q3

REPORT INFORMATION
  Report Type: Spontaneous
  Country: US (occurrence: US)
  Receive Date: 20200711
  Receipt Date: 20200711
  Transmission Date: 20201103
  Serious: No
  Sender: FDA-Public Use
  Company Number: None

PATIENT
  Age: 67 Year
  Sex: Female
  Weight: 67.5 kg

DRUGS (13)
  1. MAGNESIUM CITRATE 250MG [Concomitant]
  2. VIT D 2000IU [Concomitant]
  3. UBIQUINOL 100MG [Concomitant]
  4. VIT C 90MG DR KING^S MIGRAINE RELIEF [Concomitant]
  5. EXCEDRIN TENSION [Concomitant]
  6. COLLAGEN 6000MCG [Concomitant]
  7. CALCIUM 500MG [Concomitant]
  8. B12 5000 MCG [Concomitant]
  9. VADADUSTAT. [Concomitant]
     Active Substance: VADADUSTAT
  10. BIOTIN 3000MCG [Concomitant]
  11. AIMOVIG [Suspect]
     Active Substance: ERENUMAB-AOOE
     Indication: MIGRAINE
     Dosage: ?          QUANTITY:1 INJECTION(S);OTHER FREQUENCY:MONTHLY;OTHER ROUTE:INJECTION INTO FAT ON STOMACH, LEG, ARM?
     Dates: start: 20190423
  12. OSTEO BI?FLEX [Concomitant]
     Active Substance: CHONDROITIN SULFATE A\GLUCOSAMINE
  13. VIT E 400 IU [Concomitant]

REACTIONS (1)
  - Alopecia [None]

NARRATIVE: CASE EVENT DATE: 20200101
